FAERS Safety Report 21335871 (Version 2)
Quarter: 2024Q3

REPORT INFORMATION
  Report Type: Spontaneous
  Country: US (occurrence: US)
  Receive Date: 20220915
  Receipt Date: 20240827
  Transmission Date: 20241017
  Serious: No
  Sender: MERCK
  Company Number: US-009507513-2208USA008800

PATIENT
  Sex: Female

DRUGS (1)
  1. KEYTRUDA [Suspect]
     Active Substance: PEMBROLIZUMAB
     Dosage: UNK

REACTIONS (2)
  - Speech disorder [Unknown]
  - Dysgeusia [Unknown]
